FAERS Safety Report 13129946 (Version 1)
Quarter: 2017Q1

REPORT INFORMATION
  Report Type: Spontaneous
  Country: None (occurrence: US)
  Receive Date: 20170118
  Receipt Date: 20170118
  Transmission Date: 20170428
  Serious: Yes (Hospitalization)
  Sender: FDA-Public Use
  Company Number: None

PATIENT
  Age: 66 Year
  Sex: Male
  Weight: 82.5 kg

DRUGS (6)
  1. VELCADE [Suspect]
     Active Substance: BORTEZOMIB
     Dates: end: 20170112
  2. DEXAMETHASONE. [Suspect]
     Active Substance: DEXAMETHASONE
     Dates: end: 20170113
  3. CLONAZEPAM. [Concomitant]
     Active Substance: CLONAZEPAM
  4. OXYCODONE [Concomitant]
     Active Substance: OXYCODONE
  5. MOTRIN [Concomitant]
     Active Substance: IBUPROFEN
  6. LENALIDOMIDE (CC-5013) [Suspect]
     Active Substance: LENALIDOMIDE
     Dates: end: 20170113

REACTIONS (4)
  - Decubitus ulcer [None]
  - Dyspnoea [None]
  - Pain [None]
  - Oxygen saturation decreased [None]

NARRATIVE: CASE EVENT DATE: 20170109
